FAERS Safety Report 8500386-2 (Version None)
Quarter: 2012Q3

REPORT INFORMATION
  Report Type: 
  Country: None (occurrence: None)
  Receive Date: 20120710
  Receipt Date: 20120627
  Transmission Date: 20120928
  Serious: No
  Sender: FDA-Public Use
  Company Number: US-ASTRAZENECA-2012SE07037

PATIENT
  Age: 47 Year
  Sex: Female
  Weight: 63.5 kg

DRUGS (11)
  1. NEXIUM [Suspect]
     Indication: GASTROOESOPHAGEAL REFLUX DISEASE
     Route: 048
  2. PROZAC [Concomitant]
     Indication: DEPRESSION
  3. XANAX [Concomitant]
     Indication: PANIC ATTACK
  4. SEROQUEL [Suspect]
     Indication: POST-TRAUMATIC STRESS DISORDER
     Route: 048
  5. SEROQUEL [Suspect]
     Indication: MAJOR DEPRESSION
     Route: 048
  6. XANAX [Concomitant]
     Indication: ANXIETY
  7. SEROQUEL [Suspect]
     Indication: BIPOLAR DISORDER
     Route: 048
  8. SEROQUEL [Suspect]
     Route: 048
  9. SEROQUEL [Suspect]
     Route: 048
  10. LOPID [Concomitant]
     Indication: HYPERCHOLESTEROLAEMIA
  11. SEROQUEL [Suspect]
     Route: 048

REACTIONS (6)
  - MOOD SWINGS [None]
  - FEELING ABNORMAL [None]
  - OFF LABEL USE [None]
  - DRUG DOSE OMISSION [None]
  - MALAISE [None]
  - INSOMNIA [None]
